FAERS Safety Report 12393022 (Version 1)
Quarter: 2016Q2

REPORT INFORMATION
  Report Type: Spontaneous
  Country: US (occurrence: None)
  Receive Date: 20160520
  Receipt Date: 20160520
  Transmission Date: 20160815
  Serious: Yes (Hospitalization)
  Sender: FDA-Public Use
  Company Number: None

PATIENT
  Age: 25 Year
  Sex: Female
  Weight: 64.6 kg

DRUGS (1)
  1. APIDRA [Suspect]
     Active Substance: INSULIN GLULISINE
     Indication: TYPE 1 DIABETES MELLITUS
     Dates: start: 20160511, end: 20160512

REACTIONS (5)
  - Blood glucose increased [None]
  - Device malfunction [None]
  - Device occlusion [None]
  - Diabetic ketoacidosis [None]
  - Liquid product physical issue [None]

NARRATIVE: CASE EVENT DATE: 20160511
